FAERS Safety Report 6266518-4 (Version None)
Quarter: 2009Q3

REPORT INFORMATION
  Report Type: 
  Country: None (occurrence: None)
  Receive Date: 20090710
  Receipt Date: 20090629
  Transmission Date: 20100115
  Serious: Yes (Other)
  Sender: FDA-Public Use
  Company Number: 2009AP002048

PATIENT
  Age: 59 Year
  Sex: Female

DRUGS (2)
  1. ALENDRONATE SODIUM [Suspect]
     Indication: OSTEOPOROSIS
     Dosage: 70 MG; QW; PO
     Route: 048
     Dates: start: 20081128, end: 20090515
  2. VITAMINS [Concomitant]

REACTIONS (2)
  - RENAL CANCER [None]
  - VAGINAL HAEMORRHAGE [None]
